FAERS Safety Report 8937162 (Version 1)
Quarter: 2012Q4

REPORT INFORMATION
  Report Type: Spontaneous
  Country: TR (occurrence: None)
  Receive Date: 20121121
  Receipt Date: 20121121
  Transmission Date: 20130627
  Serious: Yes (Other)
  Sender: FDA-Public Use
  Company Number: TR-JNJFOC-20121105250

PATIENT
  Age: 49 Year
  Sex: Female
  Weight: 60 kg

DRUGS (2)
  1. DECITABINE [Suspect]
     Indication: MYELODYSPLASTIC SYNDROME
     Dosage: 35 mg, 5 in 28 Day, Intravenous
     Route: 042
     Dates: start: 201205
  2. TROPISETRON (TROPISETRON) UNSPECIFIED [Concomitant]

REACTIONS (2)
  - Febrile neutropenia [None]
  - Fungal infection [None]
